FAERS Safety Report 7593701-8 (Version None)
Quarter: 2011Q3

REPORT INFORMATION
  Report Type: 
  Country: None (occurrence: None)
  Receive Date: 20110706
  Receipt Date: 20110621
  Transmission Date: 20111222
  Serious: Yes (Other)
  Sender: FDA-Public Use
  Company Number: PHHY2011US55115

PATIENT
  Sex: Male

DRUGS (1)
  1. EXJADE [Suspect]
     Indication: IRON METABOLISM DISORDER
     Dosage: 2500 MG DAILY
     Route: 048
     Dates: start: 20110413, end: 20110606

REACTIONS (3)
  - SPLEEN DISORDER [None]
  - RENAL DISORDER [None]
  - BLOOD TEST ABNORMAL [None]
